FAERS Safety Report 23427253 (Version 1)
Quarter: 2024Q1

REPORT INFORMATION
  Report Type: Spontaneous
  Country: US (occurrence: US)
  Receive Date: 20240122
  Receipt Date: 20240122
  Transmission Date: 20240409
  Serious: No
  Sender: FDA-Public Use
  Company Number: US-PERRIGO-23US014446

PATIENT
  Age: 38 Year
  Sex: Female
  Weight: 58.957 kg

DRUGS (2)
  1. IBUPROFEN [Suspect]
     Active Substance: IBUPROFEN
     Indication: Headache
     Dosage: 300 MG, QD PRN
     Route: 048
     Dates: end: 202311
  2. IBUPROFEN [Suspect]
     Active Substance: IBUPROFEN
     Dosage: 300 MG, SINGLE
     Route: 048
     Dates: start: 20231212, end: 20231212

REACTIONS (6)
  - Feeling hot [Recovered/Resolved]
  - Dry mouth [Recovered/Resolved]
  - Dysphagia [Recovered/Resolved]
  - Throat irritation [Not Recovered/Not Resolved]
  - Dizziness [Recovered/Resolved]
  - Product administered to patient of inappropriate age [Unknown]

NARRATIVE: CASE EVENT DATE: 20231212
